FAERS Safety Report 23989191 (Version 2)
Quarter: 2024Q3

REPORT INFORMATION
  Report Type: Spontaneous
  Country: JP (occurrence: JP)
  Receive Date: 20240619
  Receipt Date: 20240705
  Transmission Date: 20241017
  Serious: Yes (Death, Hospitalization)
  Sender: BAYER
  Company Number: JP-BAYER-2024A084098

PATIENT
  Age: 76 Year
  Sex: Male
  Weight: 59.3 kg

DRUGS (23)
  1. NUBEQA [Suspect]
     Active Substance: DAROLUTAMIDE
     Indication: Hormone-dependent prostate cancer
     Dosage: DAILY DOSE 4 DF
     Route: 048
     Dates: start: 20240115, end: 20240513
  2. NUBEQA [Suspect]
     Active Substance: DAROLUTAMIDE
     Indication: Hormone-dependent prostate cancer
     Dosage: UNK
     Dates: end: 20240603
  3. DOCETAXEL [Suspect]
     Active Substance: DOCETAXEL\DOCETAXEL ANHYDROUS
     Indication: Hormone-dependent prostate cancer
     Dosage: UNK
     Route: 042
     Dates: start: 20240115, end: 20240115
  4. DOCETAXEL [Suspect]
     Active Substance: DOCETAXEL\DOCETAXEL ANHYDROUS
     Indication: Hormone-dependent prostate cancer
     Dosage: UNK
     Route: 042
     Dates: start: 20240205, end: 20240205
  5. DOCETAXEL [Suspect]
     Active Substance: DOCETAXEL\DOCETAXEL ANHYDROUS
     Indication: Hormone-dependent prostate cancer
     Dosage: UNK
     Route: 042
     Dates: start: 20240226, end: 20240226
  6. DOCETAXEL [Suspect]
     Active Substance: DOCETAXEL\DOCETAXEL ANHYDROUS
     Indication: Hormone-dependent prostate cancer
     Dosage: UNK
     Route: 042
     Dates: start: 20240318, end: 20240318
  7. DOCETAXEL [Suspect]
     Active Substance: DOCETAXEL\DOCETAXEL ANHYDROUS
     Indication: Hormone-dependent prostate cancer
     Dosage: UNK
     Dates: start: 20240408, end: 20240408
  8. DOCETAXEL [Suspect]
     Active Substance: DOCETAXEL\DOCETAXEL ANHYDROUS
     Indication: Hormone-dependent prostate cancer
     Dosage: UNK
     Dates: start: 20240430, end: 20240430
  9. PEGFILGRASTIM [Suspect]
     Active Substance: PEGFILGRASTIM
     Indication: Prophylaxis
     Dosage: UNK
     Route: 030
     Dates: start: 20240209, end: 20240502
  10. DEGARELIX [Concomitant]
     Active Substance: DEGARELIX
     Indication: Hormone-refractory prostate cancer
     Dosage: UNK
     Dates: start: 20240115, end: 20240513
  11. DEGARELIX [Concomitant]
     Active Substance: DEGARELIX
     Indication: Hormone-refractory prostate cancer
     Dosage: UNK
     Dates: end: 20240603
  12. HEPARIN CALCIUM [Concomitant]
     Active Substance: HEPARIN CALCIUM
     Indication: Prophylaxis
     Route: 058
  13. PREDNISOLONE [Concomitant]
     Active Substance: PREDNISOLONE
     Indication: Acute interstitial pneumonitis
     Dosage: DAILY DOSE 10 MG
  14. PREDNISOLONE [Concomitant]
     Active Substance: PREDNISOLONE
     Indication: Acute interstitial pneumonitis
     Dosage: DAILY DOSE 10 MG
     Dates: start: 20240513, end: 20240513
  15. PREDNISOLONE [Concomitant]
     Active Substance: PREDNISOLONE
     Indication: Acute interstitial pneumonitis
     Dosage: DAILY DOSE 40 MG
     Dates: start: 20240514, end: 20240611
  16. PREDNISOLONE [Concomitant]
     Active Substance: PREDNISOLONE
     Indication: Acute interstitial pneumonitis
     Dosage: DAILY DOSE 60 MG
     Dates: start: 20240612
  17. LANSOPRAZOLE [Concomitant]
     Active Substance: LANSOPRAZOLE
     Indication: Prophylaxis
     Dosage: 15 MG, QD
  18. LANSOPRAZOLE [Concomitant]
     Active Substance: LANSOPRAZOLE
     Indication: Prophylaxis
     Dosage: 15 MG, QD
     Dates: start: 20240516
  19. BONALON [Concomitant]
     Active Substance: ALENDRONATE SODIUM
     Indication: Prophylaxis
     Dosage: 1 DF, OM
  20. BONALON [Concomitant]
     Active Substance: ALENDRONATE SODIUM
     Indication: Prophylaxis
     Dosage: UNK UNK, OW
     Dates: start: 20240529
  21. ONGLYZA [Concomitant]
     Active Substance: SAXAGLIPTIN HYDROCHLORIDE
     Dosage: 5 MG, QD
  22. METFORMIN HYDROCHLORIDE [Concomitant]
     Active Substance: METFORMIN HYDROCHLORIDE
     Dosage: 500 MG, QD
  23. SULFAMETHOXAZOLE\TRIMETHOPRIM [Concomitant]
     Active Substance: SULFAMETHOXAZOLE\TRIMETHOPRIM
     Indication: Prophylaxis
     Dosage: 1 DF, QOD
     Dates: start: 20240514

REACTIONS (3)
  - Acute interstitial pneumonitis [Fatal]
  - Dyspnoea [None]
  - Cough [None]

NARRATIVE: CASE EVENT DATE: 20240513
